FAERS Safety Report 5145448-5 (Version None)
Quarter: 2006Q4

REPORT INFORMATION
  Report Type: 
  Country: None (occurrence: None)
  Receive Date: 20061101
  Receipt Date: 20061020
  Transmission Date: 20070319
  Serious: Yes (Hospitalization, Other)
  Sender: FDA-Public Use
  Company Number: HQWYE046513OCT06

PATIENT
  Age: 57 Year
  Sex: Female

DRUGS (2)
  1. PREMARIN [Suspect]
     Indication: MENOPAUSAL SYMPTOMS
     Dosage: ORAL
     Route: 048
     Dates: end: 20060620
  2. PROVERA [Suspect]
     Dosage: ORAL
     Route: 048
     Dates: end: 20060620

REACTIONS (5)
  - AUTOIMMUNE DISORDER [None]
  - COLITIS ULCERATIVE [None]
  - HEPATITIS [None]
  - MALAISE [None]
  - PRURITUS [None]
